FAERS Safety Report 7949583 (Version 3)
Quarter: 2014Q1

REPORT INFORMATION
  Report Type: Spontaneous
  Country: US (occurrence: US)
  Receive Date: 20110518
  Receipt Date: 20140205
  Transmission Date: 20141002
  Serious: Yes (Hospitalization, Other)
  Sender: FDA-Public Use
  Company Number: US-BAYER-2011-041759

PATIENT
  Age: 53 Year
  Sex: Female
  Weight: 73.47 kg

DRUGS (11)
  1. YAZ [Suspect]
     Indication: CONTRACEPTION
     Dosage: UNK UNK, QD
     Dates: start: 200510, end: 200805
  2. YASMIN [Suspect]
     Indication: CONTRACEPTION
     Dosage: UNK UNK, QD
     Dates: start: 200510, end: 200805
  3. OMEPRAZOLE [Concomitant]
     Indication: ABDOMINAL PAIN UPPER
     Dosage: UNK
     Dates: start: 2007
  4. ADVAIR [Concomitant]
     Indication: ASTHMA
     Dosage: UNK
     Dates: start: 2007
  5. PREVACID [Concomitant]
     Indication: GASTRITIS
  6. MAALOX [Concomitant]
  7. PROTONIX [Concomitant]
  8. VICOPROFEN [Concomitant]
  9. ZOCOR [Concomitant]
  10. VICODIN [Concomitant]
  11. ADVAIR DISKUS [Concomitant]

REACTIONS (15)
  - Gallbladder disorder [None]
  - Cholecystitis acute [None]
  - Emotional disorder [None]
  - Frustration [None]
  - Anxiety [None]
  - Pain [None]
  - Scar [None]
  - Abdominal distension [None]
  - Flatulence [None]
  - Dyspepsia [None]
  - Constipation [None]
  - Diarrhoea [None]
  - Gastric disorder [None]
  - Mental disorder [None]
  - Emotional distress [None]
